FAERS Safety Report 23673545 (Version 1)
Quarter: 2024Q1

REPORT INFORMATION
  Report Type: Spontaneous
  Country: US (occurrence: US)
  Receive Date: 20240326
  Receipt Date: 20240326
  Transmission Date: 20240410
  Serious: Yes (Disabling)
  Sender: FDA-Public Use
  Company Number: US-Oxford Pharmaceuticals, LLC-2154849

PATIENT
  Age: 39 Year
  Sex: Male

DRUGS (10)
  1. BACLOFEN [Suspect]
     Active Substance: BACLOFEN
     Indication: Painful erection
  2. CLONAZEPAM [Suspect]
     Active Substance: CLONAZEPAM
  3. IMIPRAMINE HYDROCHLORIDE [Suspect]
     Active Substance: IMIPRAMINE HYDROCHLORIDE
  4. SELENIUM [Concomitant]
     Active Substance: SELENIUM
  5. IRON [Concomitant]
     Active Substance: IRON
  6. VITAMIN B [Concomitant]
     Active Substance: VITAMIN B
  7. MORPHINE SULFATE [Concomitant]
     Active Substance: MORPHINE SULFATE
  8. OXYCODONE. [Concomitant]
     Active Substance: OXYCODONE HYDROCHLORIDE
  9. SODIUM OXYBATE [Concomitant]
     Active Substance: SODIUM OXYBATE
  10. TADALAFIL [Suspect]
     Active Substance: TADALAFIL

REACTIONS (2)
  - Somnolence [Recovering/Resolving]
  - Product use in unapproved indication [Unknown]
